FAERS Safety Report 6803047-0 (Version None)
Quarter: 2010Q2

REPORT INFORMATION
  Report Type: 
  Country: None (occurrence: None)
  Receive Date: 20100628
  Receipt Date: 20100618
  Transmission Date: 20101027
  Serious: Yes (Other)
  Sender: FDA-Public Use
  Company Number: JP-PFIZER INC-2010074438

PATIENT

DRUGS (7)
  1. DETRUSITOL [Suspect]
     Dosage: UNK
     Route: 048
  2. HALCION [Concomitant]
     Dosage: UNK
  3. NORVASC [Concomitant]
     Dosage: UNK
  4. MERISLON [Concomitant]
     Dosage: UNK
  5. ARICEPT [Concomitant]
     Dosage: UNK
  6. GRANDAXIN [Concomitant]
     Dosage: UNK
  7. GASTER [Concomitant]
     Dosage: UNK

REACTIONS (1)
  - MYOCLONIC EPILEPSY [None]
